FAERS Safety Report 4532953-5 (Version None)
Quarter: 2004Q4

REPORT INFORMATION
  Report Type: 
  Country: None (occurrence: None)
  Receive Date: 20041210
  Receipt Date: 20040820
  Transmission Date: 20050328
  Serious: No
  Sender: FDA-Public Use
  Company Number: 2004-00294

PATIENT
  Age: 71 Year
  Sex: Female

DRUGS (8)
  1. VELCADE [Suspect]
     Indication: MULTIPLE MYELOMA
     Dosage: 2.10 MG, INTRAVENOUS
     Route: 042
     Dates: start: 20040101, end: 20040601
  2. DECADRON [Concomitant]
  3. AREDIA [Concomitant]
  4. PROCRIT (ERYTHROPOIETIN) [Concomitant]
  5. VICOPROFEN [Concomitant]
  6. MAVIK [Concomitant]
  7. OXYCONTIN [Concomitant]
  8. OXYCODONE HCL [Concomitant]

REACTIONS (11)
  - ANOREXIA [None]
  - ASTHENIA [None]
  - BUTTOCK PAIN [None]
  - DISEASE PROGRESSION [None]
  - FATIGUE [None]
  - HYPONATRAEMIA [None]
  - INAPPROPRIATE ANTIDIURETIC HORMONE SECRETION [None]
  - NAUSEA [None]
  - NEUROPATHY [None]
  - PARAESTHESIA [None]
  - VOMITING [None]
